FAERS Safety Report 6660369-4 (Version None)
Quarter: 2010Q1

REPORT INFORMATION
  Report Type: 
  Country: None (occurrence: None)
  Receive Date: 20100330
  Receipt Date: 20100330
  Transmission Date: 20100710
  Serious: Yes (Other)
  Sender: FDA-Public Use
  Company Number: None

PATIENT
  Age: 33 Year
  Sex: Female
  Weight: 56.6996 kg

DRUGS (2)
  1. DEPO-PROVERA [Suspect]
     Dates: start: 20050801, end: 20070801
  2. DEPO-PROVERA [Suspect]
     Dates: start: 20091001, end: 20100401

REACTIONS (1)
  - JOINT CREPITATION [None]
